FAERS Safety Report 12427072 (Version 2)
Quarter: 2016Q3

REPORT INFORMATION
  Report Type: Spontaneous
  Country: US (occurrence: US)
  Receive Date: 20160601
  Receipt Date: 20160802
  Transmission Date: 20161109
  Serious: No
  Sender: FDA-Public Use
  Company Number: US-009507513-1605USA013688

PATIENT
  Age: 37 Year
  Sex: Female
  Weight: 254 kg

DRUGS (1)
  1. BELSOMRA [Suspect]
     Active Substance: SUVOREXANT
     Indication: SLEEP DISORDER
     Dosage: STRENGTH: 10 (UNITS NOT REPORTED); DOSE: 1 (UNITS NOT REPORTED), AT BEDTIME
     Route: 048
     Dates: start: 20151201

REACTIONS (2)
  - Somnolence [Not Recovered/Not Resolved]
  - Insomnia [Not Recovered/Not Resolved]

NARRATIVE: CASE EVENT DATE: 20151209
